FAERS Safety Report 6265367-0 (Version None)
Quarter: 2009Q3

REPORT INFORMATION
  Report Type: 
  Country: None (occurrence: None)
  Receive Date: 20090713
  Receipt Date: 20090707
  Transmission Date: 20100115
  Serious: Yes (Other)
  Sender: FDA-Public Use
  Company Number: US-BAYER-200925692NA

PATIENT
  Age: 62 Year
  Sex: Female
  Weight: 57 kg

DRUGS (5)
  1. CLIMARA [Suspect]
     Indication: HORMONE REPLACEMENT THERAPY
     Dosage: CONTINUOUS DELIVERY FOR ONCE WEEKLY APPLICATION
     Route: 062
     Dates: end: 20070101
  2. CLIMARA [Suspect]
     Dosage: CONTINUOUS DELIVERY FOR ONCE WEEKLY APPLICATION
     Route: 062
  3. DILANTIN [Concomitant]
  4. PHENOBARBITAL [Concomitant]
  5. DIAZEPAM [Concomitant]

REACTIONS (1)
  - PETIT MAL EPILEPSY [None]
